FAERS Safety Report 7680570-0 (Version None)
Quarter: 2011Q3

REPORT INFORMATION
  Report Type: 
  Country: None (occurrence: None)
  Receive Date: 20110812
  Receipt Date: 20110803
  Transmission Date: 20111222
  Serious: Yes (Hospitalization)
  Sender: FDA-Public Use
  Company Number: CA-JNJFOC-20110703324

PATIENT
  Sex: Female
  Weight: 140 kg

DRUGS (8)
  1. FLOVENT [Concomitant]
  2. METHOTREXATE [Concomitant]
  3. VENTOLIN HFA [Concomitant]
  4. REMICADE [Suspect]
     Indication: PSORIASIS
     Route: 042
     Dates: start: 20090903
  5. SEREVENT [Concomitant]
  6. FUROSEMIDE [Concomitant]
     Route: 065
  7. AVELOX [Concomitant]
     Route: 042
  8. ASPIRIN [Concomitant]
     Route: 065

REACTIONS (2)
  - PNEUMONIA [None]
  - PERICARDITIS [None]
